FAERS Safety Report 9714800 (Version 1)
Quarter: 2013Q4

REPORT INFORMATION
  Report Type: Spontaneous
  Country: US (occurrence: US)
  Receive Date: 20131126
  Receipt Date: 20131126
  Transmission Date: 20140711
  Serious: No
  Sender: FDA-Public Use
  Company Number: US-009507513-1310USA013260

PATIENT
  Sex: 0

DRUGS (1)
  1. DULERA [Suspect]
     Dosage: 2 PUFFS, BID
     Route: 055
     Dates: start: 20131021

REACTIONS (3)
  - Underdose [Unknown]
  - Device malfunction [Unknown]
  - No adverse event [Unknown]
